FAERS Safety Report 5010188-X (Version None)
Quarter: 2006Q2

REPORT INFORMATION
  Report Type: 
  Country: None (occurrence: None)
  Receive Date: 20060404
  Receipt Date: 20060307
  Transmission Date: 20061013
  Serious: Yes (Hospitalization, Other)
  Sender: FDA-Public Use
  Company Number: US200511003056

PATIENT
  Age: 22 Year
  Sex: Female
  Weight: 67.1 kg

DRUGS (6)
  1. CYMBALTA [Suspect]
     Indication: DEPRESSION
     Dosage: SEE IMAGE
     Route: 048
     Dates: start: 20051018, end: 20051025
  2. CYMBALTA [Suspect]
     Indication: DEPRESSION
     Dosage: SEE IMAGE
     Route: 048
     Dates: start: 20051026, end: 20051118
  3. CYMBALTA [Suspect]
     Indication: DEPRESSION
     Dosage: SEE IMAGE
     Route: 048
     Dates: start: 20051119
  4. AMITRIPTYLINE HCL [Concomitant]
  5. ORTHO TRI-CYCLEN [Concomitant]
  6. EXCEDRIN /USA/ (ACETYLSALICYLIC ACID, CAFFEINE, PARACETAMOL) [Concomitant]

REACTIONS (5)
  - AGITATION [None]
  - INTENTIONAL SELF-INJURY [None]
  - NAUSEA [None]
  - RESTLESSNESS [None]
  - TRANCE [None]
